FAERS Safety Report 9547264 (Version 1)
Quarter: 2013Q2

REPORT INFORMATION
  Report Type: Spontaneous
  Country: US (occurrence: None)
  Receive Date: 20130606
  Receipt Date: 20130606
  Transmission Date: 20140414
  Serious: No
  Sender: FDA-Public Use
  Company Number: 2013PROUSA02587

PATIENT
  Age: 69 Year
  Sex: Male
  Weight: 85.4 kg

DRUGS (13)
  1. PROVENGE (SIPULEUCEL-T) SUSPENSION, 250 ML [Suspect]
     Indication: PROSTATE CANCER METASTATIC
     Dosage: SINGLE
     Route: 042
     Dates: start: 20130125, end: 20130125
  2. CELEBREX (CELECOXIB) [Concomitant]
  3. CITALOPRAM (CITALOPRAM HYDROCHLORIDE) [Concomitant]
  4. ENABLEX (DARIFENACIN HYDROBROMIDE) [Concomitant]
  5. LORTAB (HYDROCODONE BITARTRATE, PARACETAMOL) [Concomitant]
  6. MULTIVITAMIN (VITAMINS NOS) [Concomitant]
  7. NEXIUM (ESOMEPRAZOLE MAGNESIUM) [Concomitant]
  8. PROCHLORPERAZINE MALEATE (PROCHLORPERAZINE MALEATE) [Concomitant]
  9. RANTIDINE (RANITIDINE HYDROCHLORIDE) [Concomitant]
  10. SENNA PLUS (DOCUSATE SODIUM, SENNOSIDE A+B) [Concomitant]
  11. VITAMIN C [Concomitant]
  12. ZOLPIDEM (ZOLPIDEM TARTRATE) [Concomitant]
  13. ZYPREXA (OLANZAPINE) [Concomitant]

REACTIONS (1)
  - Haemoglobin decreased [None]
